FAERS Safety Report 9731223 (Version 1)
Quarter: 2013Q4

REPORT INFORMATION
  Report Type: Spontaneous
  Country: US (occurrence: US)
  Receive Date: 20131203
  Receipt Date: 20131203
  Transmission Date: 20140711
  Serious: No
  Sender: FDA-Public Use
  Company Number: US-009507513-1312USA001180

PATIENT
  Sex: Male

DRUGS (2)
  1. RIBAVIRIN (WARRICK) [Suspect]
     Indication: HEPATITIS C
     Dosage: UNK
     Route: 048
     Dates: start: 20070929, end: 20090214
  2. INTERFERON ALFA-2B [Suspect]
     Indication: HEPATITIS C
     Dosage: UNK UNK, QW
     Dates: start: 20070929, end: 20090214

REACTIONS (3)
  - Hepatitis C [Unknown]
  - Influenza like illness [Unknown]
  - Depression [Unknown]
